FAERS Safety Report 9804916 (Version 1)
Quarter: 2014Q1

REPORT INFORMATION
  Report Type: Report from Study
  Country: IT (occurrence: IT)
  Receive Date: 20140108
  Receipt Date: 20140108
  Transmission Date: 20141002
  Serious: Yes (Other)
  Sender: FDA-Public Use
  Company Number: IT-ROCHE-1328416

PATIENT
  Sex: 0

DRUGS (3)
  1. RITUXIMAB [Suspect]
     Indication: B-CELL LYMPHOMA
     Route: 065
  2. LENALIDOMIDE [Suspect]
     Indication: B-CELL LYMPHOMA
     Dosage: 25 MG/DAY FOR 21 DAYS EVERY 28 DAYS AS SINGLE AGENT OR IN ASSOCIATION WITH DEXAMETHASONE OR 20 MG/DA
     Route: 048
  3. DEXAMETHASONE [Suspect]
     Indication: B-CELL LYMPHOMA
     Dosage: BOLUS
     Route: 065

REACTIONS (6)
  - Neutropenia [Unknown]
  - Anaemia [Unknown]
  - Thrombocytopenia [Unknown]
  - Infection [Unknown]
  - Embolism [Unknown]
  - Neuropathy peripheral [Unknown]
